FAERS Safety Report 20335199 (Version 1)
Quarter: 2022Q1

REPORT INFORMATION
  Report Type: Spontaneous
  Country: US (occurrence: US)
  Receive Date: 20220114
  Receipt Date: 20220114
  Transmission Date: 20220424
  Serious: No
  Sender: FDA-Public Use
  Company Number: US-BEH-2022140537

PATIENT
  Sex: Female

DRUGS (2)
  1. HIZENTRA [Suspect]
     Active Substance: HUMAN IMMUNOGLOBULIN G
     Indication: Juvenile idiopathic arthritis
     Dosage: 10 GRAM, QW
     Route: 058
     Dates: start: 202106
  2. HIZENTRA [Suspect]
     Active Substance: HUMAN IMMUNOGLOBULIN G
     Indication: Hypogammaglobulinaemia
     Dosage: 4 GRAM, QW
     Route: 058
     Dates: start: 202106

REACTIONS (10)
  - Weight fluctuation [Unknown]
  - Fluid imbalance [Unknown]
  - Infusion site pain [Unknown]
  - Infusion site pruritus [Unknown]
  - Micturition disorder [Unknown]
  - Decreased appetite [Unknown]
  - Dyspnoea [Unknown]
  - Swelling [Unknown]
  - No adverse event [Unknown]
  - Off label use [Unknown]
